FAERS Safety Report 8262953-3 (Version None)
Quarter: 2012Q2

REPORT INFORMATION
  Report Type: 
  Country: None (occurrence: None)
  Receive Date: 20120405
  Receipt Date: 20120329
  Transmission Date: 20120825
  Serious: Yes (Hospitalization, Other)
  Sender: FDA-Public Use
  Company Number: US-BRISTOL-MYERS SQUIBB COMPANY-16487753

PATIENT
  Age: 65 Year
  Sex: Male
  Weight: 86 kg

DRUGS (1)
  1. YERVOY [Suspect]
     Indication: METASTATIC MALIGNANT MELANOMA
     Dosage: NO OF TREATMENTS:04 3RD DOSE ON22FEB12, 4TH ON 22MAR12
     Dates: start: 20120101

REACTIONS (5)
  - MALAISE [None]
  - BACK PAIN [None]
  - CATATONIA [None]
  - WEIGHT DECREASED [None]
  - DYSPHAGIA [None]
